FAERS Safety Report 18065865 (Version 1)
Quarter: 2020Q3

REPORT INFORMATION
  Report Type: Report from Study
  Country: US (occurrence: US)
  Receive Date: 20200724
  Receipt Date: 20200724
  Transmission Date: 20201103
  Serious: Yes (Death, Other)
  Sender: FDA-Public Use
  Company Number: US-ROCHE-2502743

PATIENT
  Age: 66 Year
  Sex: Female
  Weight: 81.3 kg

DRUGS (23)
  1. AMOXICILLIN CLAVULANIC ACID [Concomitant]
     Active Substance: AMOXICILLIN\CLAVULANIC ACID
  2. INSULIN GLARGINE [Concomitant]
     Active Substance: INSULIN GLARGINE
  3. LORATADINE. [Concomitant]
     Active Substance: LORATADINE
  4. METFORMIN [Concomitant]
     Active Substance: METFORMIN HYDROCHLORIDE
  5. SERTRALINE [Concomitant]
     Active Substance: SERTRALINE HYDROCHLORIDE
  6. ATORVASTATIN [Concomitant]
     Active Substance: ATORVASTATIN
  7. GLIPIZIDE. [Concomitant]
     Active Substance: GLIPIZIDE
  8. MEMANTINE. [Concomitant]
     Active Substance: MEMANTINE
  9. ATEZOLIZUMAB. [Suspect]
     Active Substance: ATEZOLIZUMAB
     Indication: SMALL CELL LUNG CANCER
     Dosage: LAST ADMINISTERED DATE: 19/NOV/2019
     Route: 042
     Dates: start: 20190821, end: 20191119
  10. FLUTICASONE. [Concomitant]
     Active Substance: FLUTICASONE
  11. ACETAMINOPHEN;CODEINE [Concomitant]
     Active Substance: ACETAMINOPHEN\CODEINE PHOSPHATE
  12. ALBUTEROL. [Concomitant]
     Active Substance: ALBUTEROL
  13. FLUTICASONE;VILANTEROL [Concomitant]
     Active Substance: FLUTICASONE FUROATE\VILANTEROL TRIFENATATE
  14. ONDANSETRON [Concomitant]
     Active Substance: ONDANSETRON
  15. CISPLATIN. [Suspect]
     Active Substance: CISPLATIN
     Indication: SMALL CELL LUNG CANCER
     Dosage: 08/OCT/2019: THE LAST ROUND OF CISPLATIN
     Route: 065
     Dates: start: 20190724
  16. TRAMADOL. [Concomitant]
     Active Substance: TRAMADOL
  17. ETOPOSIDE. [Suspect]
     Active Substance: ETOPOSIDE
     Indication: SMALL CELL LUNG CANCER
     Dosage: 08/OCT/2019: THE LAST ROUND OF ETOPOSIDE
     Route: 065
     Dates: start: 20190723
  18. HYDROCHLOROTHIAZIDE. [Concomitant]
     Active Substance: HYDROCHLOROTHIAZIDE
  19. PROCHLORPERAZINE. [Concomitant]
     Active Substance: PROCHLORPERAZINE
  20. GLYBURIDE. [Concomitant]
     Active Substance: GLYBURIDE
  21. HYDROCODONE/ACETAMINOPHEN [Concomitant]
     Active Substance: ACETAMINOPHEN\HYDROCODONE
  22. METHIMAZOLE. [Concomitant]
     Active Substance: METHIMAZOLE
  23. OMEPRAZOLE. [Concomitant]
     Active Substance: OMEPRAZOLE

REACTIONS (2)
  - Hypoxia [Unknown]
  - Death [Fatal]

NARRATIVE: CASE EVENT DATE: 20191206
